FAERS Safety Report 5701409-6 (Version None)
Quarter: 2008Q2

REPORT INFORMATION
  Report Type: 
  Country: None (occurrence: None)
  Receive Date: 20080410
  Receipt Date: 20080407
  Transmission Date: 20081010
  Serious: Yes (Hospitalization, Other)
  Sender: FDA-Public Use
  Company Number: CA-MERCK-0804CAN00020

PATIENT
  Sex: Male

DRUGS (2)
  1. ISENTRESS [Suspect]
     Route: 048
     Dates: start: 20080308, end: 20080401
  2. [THERAPY UNSPECIFIED] [Concomitant]
     Route: 065

REACTIONS (6)
  - DRY MOUTH [None]
  - HEADACHE [None]
  - HYPOAESTHESIA ORAL [None]
  - PARAESTHESIA ORAL [None]
  - RASH [None]
  - SINUS HEADACHE [None]
